FAERS Safety Report 8532594-9 (Version None)
Quarter: 2012Q3

REPORT INFORMATION
  Report Type: 
  Country: None (occurrence: None)
  Receive Date: 20120724
  Receipt Date: 20120720
  Transmission Date: 20120928
  Serious: No
  Sender: FDA-Public Use
  Company Number: US-PFIZER INC-2012176373

PATIENT
  Sex: Female
  Weight: 81.63 kg

DRUGS (2)
  1. NORVASC [Suspect]
     Indication: HYPERTENSION
     Dosage: 5 MG, 1X/DAY
     Route: 048
     Dates: end: 20120719
  2. MAXZIDE [Concomitant]
     Dosage: UNK

REACTIONS (1)
  - HEADACHE [None]
